FAERS Safety Report 9033675 (Version 1)
Quarter: 2013Q1

REPORT INFORMATION
  Report Type: Spontaneous
  Country: CA (occurrence: CA)
  Receive Date: 20130128
  Receipt Date: 20130128
  Transmission Date: 20140127
  Serious: Yes (Hospitalization, Other)
  Sender: FDA-Public Use
  Company Number: CA-AMGEN-CANSP2012078498

PATIENT
  Age: 60 Year
  Sex: Male

DRUGS (2)
  1. ENBREL [Suspect]
     Indication: PSORIASIS
     Dosage: 50 MG, 2 TIMES/WK
     Dates: start: 20061218
  2. ALTACE [Concomitant]
     Dosage: 10 MG, QD

REACTIONS (3)
  - Cerebrovascular accident [Unknown]
  - Hemiplegia [Recovering/Resolving]
  - Psoriasis [Not Recovered/Not Resolved]
